FAERS Safety Report 18834302 (Version 6)
Quarter: 2023Q4

REPORT INFORMATION
  Report Type: Other
  Country: JP (occurrence: JP)
  Receive Date: 20210203
  Receipt Date: 20231116
  Transmission Date: 20240109
  Serious: Yes (Hospitalization, Other)
  Sender: FDA-Public Use
  Company Number: JP-CHUGAI-A2021003589ROCHE

PATIENT
  Age: 82 Year
  Sex: Male
  Weight: 49.4 kg

DRUGS (5)
  1. ENSPRYNG [Suspect]
     Active Substance: SATRALIZUMAB-MWGE
     Indication: Neuromyelitis optica spectrum disorder
     Route: 058
     Dates: start: 20201118, end: 20221114
  2. PREDONINE [Concomitant]
     Active Substance: PREDNISOLONE
     Indication: Neuromyelitis optica spectrum disorder
     Dosage: 10MG/DAY
     Route: 048
  3. PREDONINE [Concomitant]
     Active Substance: PREDNISOLONE
     Indication: Neuromyelitis optica spectrum disorder
     Dosage: 5MG/DAY
     Route: 048
     Dates: start: 20200214
  4. PREDONINE [Concomitant]
     Active Substance: PREDNISOLONE
     Dosage: 7.5MG/DAY
     Route: 048
  5. PREDONINE [Concomitant]
     Active Substance: PREDNISOLONE
     Dosage: 7.5MG/DAY
     Route: 048

REACTIONS (3)
  - Cerebral infarction [Recovering/Resolving]
  - Coronavirus infection [Recovering/Resolving]
  - Neuromyelitis optica spectrum disorder [Recovered/Resolved]

NARRATIVE: CASE EVENT DATE: 20210125
